FAERS Safety Report 5148183-2 (Version None)
Quarter: 2006Q4

REPORT INFORMATION
  Report Type: 
  Country: None (occurrence: None)
  Receive Date: 20061110
  Receipt Date: 20060308
  Transmission Date: 20070319
  Serious: Yes (Other)
  Sender: FDA-Public Use
  Company Number: US-ELI_LILLY_AND_COMPANY-US200606002243

PATIENT
  Age: 45 Year
  Sex: Male
  Weight: 90.702 kg

DRUGS (4)
  1. ZYPREXA [Suspect]
     Indication: DEPRESSION
     Dosage: 5 MG, UNK
     Dates: start: 20000701, end: 20060101
  2. ZYPREXA [Suspect]
     Dosage: 10 MG, UNK
  3. PAXIL [Concomitant]
     Dates: start: 20010101
  4. VIVACTIL [Concomitant]
     Dates: start: 20020301

REACTIONS (4)
  - DIABETES MELLITUS [None]
  - HEPATITIS VIRAL [None]
  - HYPERGLYCAEMIA [None]
  - VISION BLURRED [None]
